FAERS Safety Report 18741252 (Version 4)
Quarter: 2021Q1

REPORT INFORMATION
  Report Type: Report from Study
  Country: None (occurrence: US)
  Receive Date: 20210114
  Receipt Date: 20210131
  Transmission Date: 20210419
  Serious: Yes (Other)
  Sender: FDA-Public Use
  Company Number: US-ABBVIE-21K-163-3725402-00

PATIENT
  Age: 57 Year
  Sex: Female
  Weight: 49.94 kg

DRUGS (2)
  1. DUOPA [Suspect]
     Active Substance: CARBIDOPA\LEVODOPA
  2. DUOPA [Suspect]
     Active Substance: CARBIDOPA\LEVODOPA
     Indication: PARKINSON^S DISEASE
     Route: 050
     Dates: start: 201912

REACTIONS (5)
  - Delayed recovery from anaesthesia [Recovered/Resolved]
  - On and off phenomenon [Recovering/Resolving]
  - Tremor [Recovering/Resolving]
  - Device kink [Recovered/Resolved]
  - Anxiety [Recovering/Resolving]

NARRATIVE: CASE EVENT DATE: 20201227
